FAERS Safety Report 6740079-5 (Version None)
Quarter: 2010Q2

REPORT INFORMATION
  Report Type: 
  Country: None (occurrence: None)
  Receive Date: 20100525
  Receipt Date: 20090504
  Transmission Date: 20101027
  Serious: No
  Sender: FDA-Public Use
  Company Number: A0783543A

PATIENT
  Sex: Male

DRUGS (2)
  1. BACTROBAN [Suspect]
  2. UNKNOWN [Suspect]
     Indication: DRUG USE FOR UNKNOWN INDICATION

REACTIONS (1)
  - DYSGEUSIA [None]
